FAERS Safety Report 24385969 (Version 2)
Quarter: 2024Q4

REPORT INFORMATION
  Report Type: Spontaneous
  Country: US (occurrence: US)
  Receive Date: 20241001
  Receipt Date: 20241119
  Transmission Date: 20250115
  Serious: Yes (Other)
  Sender: LUNDBECK
  Company Number: US-LUNDBECK-DKLU4003297

PATIENT

DRUGS (4)
  1. VYEPTI [Suspect]
     Active Substance: EPTINEZUMAB-JJMR
     Indication: Migraine
     Dosage: 300 MILLIGRAM
     Route: 041
     Dates: start: 20240521
  2. CORGARD [Concomitant]
     Active Substance: NADOLOL
     Indication: Product used for unknown indication
     Route: 048
  3. HAILEY 1.5/30 [Concomitant]
     Active Substance: ETHINYL ESTRADIOL\NORETHINDRONE ACETATE
     Indication: Product used for unknown indication
     Route: 048
  4. SPRIX [Concomitant]
     Active Substance: KETOROLAC TROMETHAMINE
     Indication: Migraine
     Route: 045

REACTIONS (3)
  - Electrocardiogram QT prolonged [Unknown]
  - Cough [Recovering/Resolving]
  - Throat irritation [Recovered/Resolved]
